FAERS Safety Report 4688779-5 (Version None)
Quarter: 2005Q2

REPORT INFORMATION
  Report Type: 
  Country: None (occurrence: None)
  Receive Date: 20050610
  Receipt Date: 20050610
  Transmission Date: 20051028
  Serious: Yes (Hospitalization, Other)
  Sender: FDA-Public Use
  Company Number: None

PATIENT
  Sex: Male
  Weight: 69 kg

DRUGS (2)
  1. ENOXAPARIN 80 MG/0.8ML [Suspect]
     Indication: ATRIAL FIBRILLATION
     Dosage: 80 MG SQ Q 12 3 DOSES
     Route: 058
  2. HEPARIN [Suspect]
     Indication: THROMBOSIS PROPHYLAXIS
     Dosage: 5000 UNITS SQ Q 12
     Route: 058

REACTIONS (1)
  - PLATELET COUNT DECREASED [None]
